FAERS Safety Report 10052570 (Version 1)
Quarter: 2014Q2

REPORT INFORMATION
  Report Type: Spontaneous
  Country: US (occurrence: US)
  Receive Date: 20140402
  Receipt Date: 20140402
  Transmission Date: 20141212
  Serious: No
  Sender: FDA-Public Use
  Company Number: US-BAYER-2014-048837

PATIENT
  Age: 89 Year
  Sex: Male

DRUGS (1)
  1. ALEVE GELCAPS [Suspect]
     Indication: BACK PAIN
     Dosage: 1 DF, ONCE
     Route: 048
     Dates: start: 20140325, end: 20140325

REACTIONS (1)
  - Drug ineffective [None]
